FAERS Safety Report 6327802-9 (Version None)
Quarter: 2009Q3

REPORT INFORMATION
  Report Type: 
  Country: None (occurrence: None)
  Receive Date: 20090824
  Receipt Date: 20090811
  Transmission Date: 20100115
  Serious: Yes (Death, Hospitalization)
  Sender: FDA-Public Use
  Company Number: 2009AL002502

PATIENT
  Age: 25 Year
  Sex: Male

DRUGS (9)
  1. DIGOXIN [Suspect]
     Dosage: PO
     Route: 048
     Dates: end: 20080412
  2. COREG [Concomitant]
  3. PRIMACOR [Concomitant]
  4. BIDIL [Concomitant]
  5. LOVENOX [Concomitant]
  6. POTASSIUM CHLORIDE [Concomitant]
  7. ZESTRIL [Concomitant]
  8. LISINOPRIL [Concomitant]
  9. LASIX [Concomitant]

REACTIONS (15)
  - ANXIETY [None]
  - CARDIAC FAILURE CONGESTIVE [None]
  - CARDIO-RESPIRATORY ARREST [None]
  - CONDITION AGGRAVATED [None]
  - ECONOMIC PROBLEM [None]
  - EMOTIONAL DISORDER [None]
  - GASTROENTERITIS [None]
  - HEART RATE INCREASED [None]
  - INJURY [None]
  - MENTAL DISORDER [None]
  - MITRAL VALVE DISEASE [None]
  - MUSCULAR DYSTROPHY [None]
  - NERVOUSNESS [None]
  - PAIN [None]
  - VIRAL INFECTION [None]
